FAERS Safety Report 15959770 (Version 1)
Quarter: 2019Q1

REPORT INFORMATION
  Report Type: Spontaneous
  Country: PL (occurrence: PL)
  Receive Date: 20190214
  Receipt Date: 20190214
  Transmission Date: 20190417
  Serious: Yes (Hospitalization, Other)
  Sender: FDA-Public Use
  Company Number: PL-ABBVIE-19K-129-2660972-00

PATIENT
  Age: 80 Year
  Sex: Male

DRUGS (6)
  1. IBRUTINIB [Suspect]
     Active Substance: IBRUTINIB
     Indication: PRODUCT USED FOR UNKNOWN INDICATION
     Route: 065
     Dates: start: 201501, end: 2018
  2. VENETOCLAX. [Suspect]
     Active Substance: VENETOCLAX
     Dosage: FIFTH WEEK
     Route: 048
  3. VENETOCLAX. [Suspect]
     Active Substance: VENETOCLAX
     Indication: CHRONIC LYMPHOCYTIC LEUKAEMIA
     Dosage: FIRST WEEK
     Route: 048
     Dates: start: 201810
  4. VENETOCLAX. [Suspect]
     Active Substance: VENETOCLAX
     Dosage: FOURTH WEEK
     Route: 048
  5. VENETOCLAX. [Suspect]
     Active Substance: VENETOCLAX
     Dosage: SECOND WEEK
     Route: 048
  6. VENETOCLAX. [Suspect]
     Active Substance: VENETOCLAX
     Dosage: THIRD WEEK
     Route: 048

REACTIONS (9)
  - Splenomegaly [Unknown]
  - Red blood cell count decreased [Unknown]
  - Muscle spasms [Recovered/Resolved]
  - Benign prostatic hyperplasia [Unknown]
  - Chronic lymphocytic leukaemia [Unknown]
  - Urinary tract infection [Recovered/Resolved]
  - Lymphocyte percentage increased [Unknown]
  - Urinary tract infection [Recovered/Resolved]
  - Lymphadenopathy [Unknown]

NARRATIVE: CASE EVENT DATE: 201501
